FAERS Safety Report 5495660-0 (Version None)
Quarter: 2007Q4

REPORT INFORMATION
  Report Type: 
  Country: None (occurrence: None)
  Receive Date: 20071025
  Receipt Date: 20071015
  Transmission Date: 20080405
  Serious: Yes (Hospitalization)
  Sender: FDA-Public Use
  Company Number: NL-TYCO HEALTHCARE/MALLINCKRODT-T200701258

PATIENT

DRUGS (5)
  1. PAMELOR [Suspect]
  2. VALPROIC ACID [Concomitant]
  3. PROPRANOLOL [Concomitant]
  4. CODEINE SUL TAB [Concomitant]
  5. CALCIUM [Concomitant]

REACTIONS (2)
  - COMA [None]
  - DRUG TOXICITY [None]
